FAERS Safety Report 7623339-5 (Version None)
Quarter: 2011Q3

REPORT INFORMATION
  Report Type: 
  Country: None (occurrence: None)
  Receive Date: 20110720
  Receipt Date: 20110707
  Transmission Date: 20111222
  Serious: Yes (Hospitalization)
  Sender: FDA-Public Use
  Company Number: DE-ROCHE-779533

PATIENT
  Sex: Male
  Weight: 130.9 kg

DRUGS (8)
  1. FRAGMIN [Concomitant]
     Dosage: DOSE 5000 IE
     Route: 058
     Dates: start: 20110429, end: 20110624
  2. INSULIN [Concomitant]
     Indication: DIABETES MELLITUS
     Dosage: DOSE 40 IE
     Route: 058
     Dates: end: 20110521
  3. KEVATRIL [Concomitant]
     Indication: NAUSEA
     Route: 042
     Dates: start: 20110505
  4. ACETAMINOPHEN [Concomitant]
     Indication: PAIN
     Route: 042
     Dates: start: 20110503, end: 20110614
  5. PANTOPRAZOLE [Concomitant]
     Indication: GASTROINTESTINAL DISORDER
     Route: 048
     Dates: start: 20110502
  6. LORAZEPAM [Concomitant]
     Indication: DEPRESSION
     Route: 048
     Dates: start: 20110502
  7. CAPECITABINE [Suspect]
     Indication: RECTAL CANCER
     Dosage: ON DAY 1 TO 11, MOST RECENT DOSE ON: 23 MARCH 2011
     Route: 048
     Dates: start: 20110214
  8. CAPECITABINE [Suspect]
     Dosage: FRIST POST OPERATIVE DOSE
     Route: 048
     Dates: start: 20110621

REACTIONS (3)
  - URINARY INCONTINENCE [None]
  - DIABETES MELLITUS INADEQUATE CONTROL [None]
  - WOUND COMPLICATION [None]
